FAERS Safety Report 17788070 (Version 1)
Quarter: 2020Q2

REPORT INFORMATION
  Report Type: Spontaneous
  Country: FR (occurrence: FR)
  Receive Date: 20200514
  Receipt Date: 20200514
  Transmission Date: 20200714
  Serious: Yes (Other)
  Sender: FDA-Public Use
  Company Number: FR-MYLANLABS-2020M1046480

PATIENT
  Age: 14 Year
  Sex: Male

DRUGS (1)
  1. TOBI [Suspect]
     Active Substance: TOBRAMYCIN
     Indication: BACTERIAL DISEASE CARRIER
     Dosage: 600 MILLIGRAM/KILOGRAM, QD
     Route: 055
     Dates: start: 202001

REACTIONS (2)
  - Condition aggravated [Recovered/Resolved]
  - Urinary retention [Recovered/Resolved]

NARRATIVE: CASE EVENT DATE: 2020
